FAERS Safety Report 10763180 (Version 1)
Quarter: 2015Q1

REPORT INFORMATION
  Report Type: Spontaneous
  Country: DK (occurrence: DK)
  Receive Date: 20150204
  Receipt Date: 20150204
  Transmission Date: 20150721
  Serious: Yes (Other)
  Sender: FDA-Public Use
  Company Number: DK-PFIZER INC-2015042271

PATIENT
  Sex: Male

DRUGS (1)
  1. MINPROSTIN [Suspect]
     Active Substance: DINOPROSTONE
     Indication: LABOUR INDUCTION
     Dosage: DOSE: 2 X 1 VAGINAL (3 MG WITH 6 HOURS INTERVAL, STRENGTH: 3 MG)
     Route: 050
     Dates: start: 20150102

REACTIONS (1)
  - Foetal heart rate abnormal [Recovered/Resolved]

NARRATIVE: CASE EVENT DATE: 20150102
